FAERS Safety Report 7325722-4 (Version None)
Quarter: 2011Q1

REPORT INFORMATION
  Report Type: 
  Country: None (occurrence: None)
  Receive Date: 20110218
  Receipt Date: 20110215
  Transmission Date: 20110831
  Serious: Yes (Other)
  Sender: FDA-Public Use
  Company Number: 2011SP005823

PATIENT
  Age: 70 Year

DRUGS (1)
  1. ESLAX (ROCURONIUM BROMIDE /01245702/ ) [Suspect]
     Indication: MECHANICAL VENTILATION
     Dosage: 0.5 MCG/KG; INDRP
     Route: 041
     Dates: start: 20110128, end: 20110204

REACTIONS (1)
  - NEUROMUSCULAR BLOCK PROLONGED [None]
